FAERS Safety Report 17317064 (Version 2)
Quarter: 2020Q1

REPORT INFORMATION
  Report Type: Spontaneous
  Country: US (occurrence: US)
  Receive Date: 20200124
  Receipt Date: 20200226
  Transmission Date: 20200409
  Serious: No
  Sender: FDA-Public Use
  Company Number: US-ASTRAZENECA-2019SF91595

PATIENT
  Sex: Female

DRUGS (2)
  1. TRELOGY [Concomitant]
     Route: 065
  2. SYMBICORT [Suspect]
     Active Substance: BUDESONIDE\FORMOTEROL FUMARATE DIHYDRATE
     Dosage: 160 MCG+ 4.5 MCG 2 PUFFS TWICE A DAY
     Route: 055
     Dates: start: 20191213

REACTIONS (5)
  - Memory impairment [Unknown]
  - Accident [Unknown]
  - Device failure [Unknown]
  - Abnormal behaviour [Unknown]
  - Respiratory fume inhalation disorder [Unknown]
